FAERS Safety Report 25293185 (Version 1)
Quarter: 2025Q2

REPORT INFORMATION
  Report Type: Spontaneous
  Country: US (occurrence: US)
  Receive Date: 20250510
  Receipt Date: 20250510
  Transmission Date: 20250717
  Serious: No
  Sender: SANOFI AVENTIS
  Company Number: US-SA-2025SA126833

PATIENT
  Sex: Female

DRUGS (3)
  1. DUPIXENT [Suspect]
     Active Substance: DUPILUMAB
     Indication: Asthma
     Dosage: 300 MG, QOW
     Route: 058
     Dates: start: 202210
  2. ARCALYST [Concomitant]
     Active Substance: RILONACEPT
     Indication: Pericarditis
  3. ARCALYST [Concomitant]
     Active Substance: RILONACEPT
     Dosage: 2.000ML Q8D UNDER THE SKIN

REACTIONS (2)
  - Pharyngitis streptococcal [Unknown]
  - Bronchitis [Unknown]
